FAERS Safety Report 13937861 (Version 4)
Quarter: 2018Q1

REPORT INFORMATION
  Report Type: Spontaneous
  Country: FR (occurrence: FR)
  Receive Date: 20170905
  Receipt Date: 20180206
  Transmission Date: 20180508
  Serious: Yes (Other)
  Sender: FDA-Public Use
  Company Number: FR-VERTEX PHARMACEUTICALS-2017-004754

PATIENT
  Age: 15 Year
  Sex: Female

DRUGS (13)
  1. MUCOMYST [Concomitant]
     Active Substance: ACETYLCYSTEINE
  2. VITAMIN K [Concomitant]
     Active Substance: PHYTONADIONE
     Dosage: UNK
  3. ALVITYL                            /02362701/ [Concomitant]
  4. CREON [Concomitant]
     Active Substance: PANCRELIPASE AMYLASE\PANCRELIPASE LIPASE\PANCRELIPASE PROTEASE
     Dosage: UNK
  5. CHOLURSO [Concomitant]
     Active Substance: URSODIOL
  6. AIROMIR                            /00139501/ [Concomitant]
     Active Substance: ALBUTEROL
     Dosage: SPRAY
  7. TADIN                              /00413701/ [Concomitant]
     Dosage: AERSOL
  8. ZYMAD [Concomitant]
     Active Substance: CHOLECALCIFEROL
     Route: 048
  9. ORKAMBI [Suspect]
     Active Substance: IVACAFTOR\LUMACAFTOR
     Indication: CYSTIC FIBROSIS
     Dosage: 4 TABS PER DAY
     Route: 048
     Dates: start: 20160823
  10. FORLAX [Concomitant]
     Active Substance: POLYETHYLENE GLYCOL 4000
  11. TOCO [Concomitant]
     Active Substance: UNSPECIFIED INGREDIENT
  12. PULMOZYME [Concomitant]
     Active Substance: DORNASE ALFA
     Dosage: AEROSOL
  13. TOBI [Concomitant]
     Active Substance: TOBRAMYCIN

REACTIONS (1)
  - Intestinal obstruction [Recovered/Resolved]

NARRATIVE: CASE EVENT DATE: 201702
